FAERS Safety Report 7515412-7 (Version None)
Quarter: 2011Q2

REPORT INFORMATION
  Report Type: 
  Country: None (occurrence: None)
  Receive Date: 20110601
  Receipt Date: 20100630
  Transmission Date: 20111010
  Serious: Yes (Other)
  Sender: FDA-Public Use
  Company Number: US-PFIZER INC-2009184674

PATIENT
  Sex: Female
  Weight: 61.2 kg

DRUGS (3)
  1. CHANTIX [Suspect]
     Indication: SMOKING CESSATION THERAPY
     Dosage: 0.5 MG, 1X/DAY
     Route: 048
     Dates: start: 20090312
  2. CHANTIX [Suspect]
     Dosage: 1 MG, 2X/DAY
     Route: 048
     Dates: start: 20090101
  3. AMBIEN [Concomitant]
     Dosage: UNK

REACTIONS (6)
  - EMOTIONAL DISORDER [None]
  - DRUG INEFFECTIVE [None]
  - MALAISE [None]
  - DEPRESSED MOOD [None]
  - IRRITABILITY [None]
  - PHYSICAL PRODUCT LABEL ISSUE [None]
